FAERS Safety Report 10047817 (Version 3)
Quarter: 2014Q2

REPORT INFORMATION
  Report Type: Spontaneous
  Country: US (occurrence: US)
  Receive Date: 20140331
  Receipt Date: 20140522
  Transmission Date: 20141212
  Serious: Yes (Other)
  Sender: FDA-Public Use
  Company Number: US-TEVA-471989USA

PATIENT
  Age: 22 Year
  Sex: Female
  Weight: 96.7 kg

DRUGS (1)
  1. PARAGARD 380A [Suspect]
     Indication: POST COITAL CONTRACEPTION
     Route: 015
     Dates: start: 20140228, end: 20140326

REACTIONS (1)
  - Device dislocation [Recovered/Resolved]
